FAERS Safety Report 24715555 (Version 1)
Quarter: 2024Q4

REPORT INFORMATION
  Report Type: Report from Study
  Country: US (occurrence: US)
  Receive Date: 20241210
  Receipt Date: 20241210
  Transmission Date: 20250115
  Serious: Yes (Death)
  Sender: RECORDATI
  Company Number: US-RECORDATI RARE DISEASE INC.-2024009644

PATIENT

DRUGS (9)
  1. ISTURISA [Suspect]
     Active Substance: OSILODROSTAT PHOSPHATE
     Indication: Cushing^s syndrome
     Dosage: 10 MG, BID
     Route: 048
     Dates: end: 20241118
  2. ISTURISA [Suspect]
     Active Substance: OSILODROSTAT PHOSPHATE
     Indication: Ectopic ACTH syndrome
     Dosage: 10 MG AT MORNING AND 15 MG AT EVENING , BID
     Route: 048
     Dates: start: 202411
  3. ISTURISA [Suspect]
     Active Substance: OSILODROSTAT PHOSPHATE
     Indication: Off label use
  4. ELIQUIS [Concomitant]
     Active Substance: APIXABAN
     Indication: Product used for unknown indication
     Dosage: 5 MILLIGRAM, BID ( 5 MG TABLET)
     Route: 048
     Dates: start: 20240102
  5. JEVTANA [Concomitant]
     Active Substance: CABAZITAXEL
     Indication: Product used for unknown indication
     Dosage: 60MG/1.5 ML, Q3W (SOLUTION)
     Route: 042
     Dates: start: 20240902
  6. POTASSIUM CHLORIDE EXTENDED RELEASE [Concomitant]
     Active Substance: POTASSIUM CHLORIDE
     Indication: Product used for unknown indication
     Dosage: 20 MILLIEQUIVALENT, QD (TABLET)
     Route: 048
     Dates: start: 20240102
  7. SIMVASTATIN [Concomitant]
     Active Substance: SIMVASTATIN
     Indication: Product used for unknown indication
     Dosage: 10 MILLIGRAM, QD (10 MG TABLET)
     Route: 048
     Dates: start: 20240102
  8. SPIRONOLACTONE [Concomitant]
     Active Substance: SPIRONOLACTONE
     Indication: Product used for unknown indication
     Dosage: 50 MILLIGRAM, BID (50 MG TABLET)
     Route: 048
     Dates: start: 20240102
  9. TELMISARTAN [Concomitant]
     Active Substance: TELMISARTAN
     Indication: Product used for unknown indication
     Dosage: 80 MILLIGRAM, QD (80 MG TABLET)
     Route: 048
     Dates: start: 20240102

REACTIONS (2)
  - Death [Fatal]
  - Off label use [Recovered/Resolved]

NARRATIVE: CASE EVENT DATE: 20241203
